FAERS Safety Report 9882093 (Version 1)
Quarter: 2014Q1

REPORT INFORMATION
  Report Type: Report from Study
  Country: US (occurrence: US)
  Receive Date: 20140207
  Receipt Date: 20140207
  Transmission Date: 20141002
  Serious: Yes (Other)
  Sender: FDA-Public Use
  Company Number: PHEH2014US002622

PATIENT
  Age: 68 Year
  Sex: Male

DRUGS (1)
  1. MYFORTIC [Suspect]
     Indication: TRANSPLANT
     Dosage: 360 MG, BID
     Route: 048
     Dates: start: 20130820

REACTIONS (1)
  - Pancreatic disorder [Unknown]
